FAERS Safety Report 8194402 (Version 2)
Quarter: 2012Q4

REPORT INFORMATION
  Report Type: 
  Country: US (occurrence: US)
  Receive Date: 20111023
  Receipt Date: 20121119
  Transmission Date: 20130627
  Serious: Yes (Death, Other)
  Sender: FDA-Public Use
  Company Number: US-ELI_LILLY_AND_COMPANY-US201110004577

PATIENT
  Sex: Female

DRUGS (14)
  1. BYETTA [Suspect]
     Dosage: 10 ug, bid
     Route: 058
     Dates: start: 200511, end: 20090906
  2. BYETTA [Suspect]
     Dosage: 5 ug, bid
  3. GLUCOPHAGE [Concomitant]
     Dosage: 500 mg, bid
  4. ASPIRIN [Concomitant]
     Dosage: 81 mg, qd
  5. LISINOPRIL [Concomitant]
     Dosage: 20 mg, qd
  6. PREMARIN [Concomitant]
     Dosage: 0.625 mg, qd
  7. PLAVIX [Concomitant]
     Dosage: 75 mg, qd
  8. LEXAPRO [Concomitant]
     Dosage: 10 mg, qd
  9. SYNTHROID [Concomitant]
     Dosage: 125 ug, qd
  10. LIPITOR [Concomitant]
     Dosage: 10 mg, qd
     Route: 048
  11. PEPCID [Concomitant]
     Dosage: 20 mg, each evening
  12. HYDROCHLOROTHIAZIDE [Concomitant]
     Dosage: 12.5 mg, qd
  13. CYMBALTA [Concomitant]
     Dosage: 30 mg, each evening
  14. ACTOS [Concomitant]
     Dosage: 15 mg, qd

REACTIONS (2)
  - Renal failure chronic [Fatal]
  - Pancreatitis [Unknown]
